FAERS Safety Report 4538417-7 (Version None)
Quarter: 2004Q4

REPORT INFORMATION
  Report Type: 
  Country: None (occurrence: None)
  Receive Date: 20041227
  Receipt Date: 20041215
  Transmission Date: 20050328
  Serious: Yes (Other)
  Sender: FDA-Public Use
  Company Number: JP-BRISTOL-MYERS SQUIBB COMPANY-12803979

PATIENT
  Age: 53 Year
  Sex: Male

DRUGS (7)
  1. EFAVIRENZ CAPS [Suspect]
     Indication: HIV INFECTION
     Route: 048
     Dates: start: 20040419
  2. ISONIAZID [Suspect]
     Indication: DISSEMINATED TUBERCULOSIS
     Dates: start: 20040430
  3. VIREAD [Suspect]
     Indication: HIV INFECTION
     Route: 048
     Dates: start: 20040419
  4. RIFAMPIN [Suspect]
     Indication: DISSEMINATED TUBERCULOSIS
     Route: 048
     Dates: start: 20040430
  5. ETHAMBUTOL HCL [Suspect]
     Indication: DISSEMINATED TUBERCULOSIS
     Route: 048
     Dates: start: 20040430
  6. SULFAPYRIDINE [Suspect]
     Indication: DISSEMINATED TUBERCULOSIS
     Dates: start: 20040430
  7. LAMIVUDINE [Concomitant]
     Indication: HIV INFECTION
     Dates: start: 20040419

REACTIONS (1)
  - RENAL FAILURE ACUTE [None]
